FAERS Safety Report 25756183 (Version 1)
Quarter: 2025Q3

REPORT INFORMATION
  Report Type: Spontaneous
  Country: US (occurrence: None)
  Receive Date: 20250902
  Receipt Date: 20250902
  Transmission Date: 20251021
  Serious: Yes (Other)
  Sender: FDA-CTU
  Company Number: None

PATIENT
  Age: 57 Year
  Sex: Female
  Weight: 83.7 kg

DRUGS (1)
  1. METHYLCOBALAMIN\SEMAGLUTIDE [Suspect]
     Active Substance: METHYLCOBALAMIN\SEMAGLUTIDE
     Indication: Weight control
     Dates: start: 20250827, end: 20250827

REACTIONS (5)
  - Vomiting [None]
  - Dehydration [None]
  - Headache [None]
  - Pain [None]
  - Bedridden [None]

NARRATIVE: CASE EVENT DATE: 20250827
